FAERS Safety Report 9796940 (Version 2)
Quarter: 2014Q1

REPORT INFORMATION
  Report Type: Spontaneous
  Country: US (occurrence: US)
  Receive Date: 20140105
  Receipt Date: 20140114
  Transmission Date: 20141002
  Serious: Yes (Death, Life-Threatening, Hospitalization, Other)
  Sender: FDA-Public Use
  Company Number: US-009507513-1401USA000367

PATIENT
  Sex: Male
  Weight: 83.9 kg

DRUGS (2)
  1. JANUVIA [Suspect]
     Dosage: 100 MG, QD
     Route: 048
     Dates: start: 20070909, end: 20110818
  2. JANUVIA [Suspect]
     Dosage: 50 MG, UNK
     Route: 048

REACTIONS (29)
  - Pancreatic carcinoma [Fatal]
  - Colitis microscopic [Unknown]
  - Cachexia [Fatal]
  - Cardio-respiratory arrest [Fatal]
  - Portal hypertension [Not Recovered/Not Resolved]
  - Chronic obstructive pulmonary disease [Not Recovered/Not Resolved]
  - Iron deficiency [Unknown]
  - Diarrhoea [Unknown]
  - Anaemia [Not Recovered/Not Resolved]
  - Pancytopenia [Not Recovered/Not Resolved]
  - Dyspnoea [Unknown]
  - Dizziness [Unknown]
  - Hypotension [Unknown]
  - Oedema peripheral [Unknown]
  - Mesenteric arteriosclerosis [Unknown]
  - Metastases to lung [Unknown]
  - Chest pain [Unknown]
  - Paracentesis [Unknown]
  - Diabetic nephropathy [Not Recovered/Not Resolved]
  - Ascites [Unknown]
  - Hepatic cirrhosis [Not Recovered/Not Resolved]
  - Splenomegaly [Unknown]
  - Non-alcoholic steatohepatitis [Unknown]
  - Renal failure acute [Fatal]
  - Renal failure chronic [Not Recovered/Not Resolved]
  - Benign prostatic hyperplasia [Unknown]
  - Hyperkalaemia [Recovered/Resolved]
  - Dehydration [Unknown]
  - Hepatorenal syndrome [Unknown]
